FAERS Safety Report 9114480 (Version 1)
Quarter: 2013Q1

REPORT INFORMATION
  Report Type: Spontaneous
  Country: JP (occurrence: JP)
  Receive Date: 20130208
  Receipt Date: 20130208
  Transmission Date: 20140127
  Serious: Yes (Hospitalization)
  Sender: FDA-Public Use
  Company Number: JP-ASTRAZENECA-2013SE02046

PATIENT
  Age: 29037 Day
  Sex: Male

DRUGS (6)
  1. CRESTOR [Suspect]
     Indication: DYSLIPIDAEMIA
     Route: 048
     Dates: start: 20121208, end: 20121220
  2. WARFARIN [Concomitant]
     Indication: CEREBRAL INFARCTION
     Route: 048
     Dates: start: 20121110
  3. FAMOTIDINE D [Concomitant]
     Indication: GASTRITIS
     Route: 048
     Dates: start: 20121110
  4. LANIRAPID [Concomitant]
     Indication: ATRIAL FIBRILLATION
     Route: 048
     Dates: start: 20121110
  5. SALOBEL [Concomitant]
     Indication: HYPERTENSION
     Route: 048
     Dates: start: 20121110
  6. MICARDIS [Concomitant]
     Indication: HYPERTENSION
     Route: 048
     Dates: start: 20121110

REACTIONS (3)
  - Drug-induced liver injury [Recovered/Resolved]
  - Chromaturia [Unknown]
  - Abdominal pain upper [Recovered/Resolved]
